FAERS Safety Report 12783211 (Version 1)
Quarter: 2016Q3

REPORT INFORMATION
  Report Type: Spontaneous
  Country: US (occurrence: US)
  Receive Date: 20160927
  Receipt Date: 20160927
  Transmission Date: 20161109
  Serious: Yes (Hospitalization)
  Sender: FDA-Public Use
  Company Number: US-BEH-2010026565

PATIENT
  Age: 12 Year
  Sex: Female
  Weight: 42.64 kg

DRUGS (7)
  1. HIZENTRA [Suspect]
     Active Substance: HUMAN IMMUNOGLOBULIN G
     Indication: IMMUNODEFICIENCY COMMON VARIABLE
     Dosage: 10 G WEEKLY (TUESDAYS)  IN ABDOMEN
     Route: 058
     Dates: start: 20100913, end: 20100913
  2. CYCLOSPORINE. [Concomitant]
     Active Substance: CYCLOSPORINE
     Dosage: 1-7 ML DAILY
  3. HIZENTRA [Suspect]
     Active Substance: HUMAN IMMUNOGLOBULIN G
     Dosage: 20 ML; SQ OVER 3 HOURS
     Route: 058
  4. AMPHOTERICIN [Concomitant]
     Active Substance: AMPHOTERICIN B
  5. HIZENTRA [Suspect]
     Active Substance: HUMAN IMMUNOGLOBULIN G
     Dosage: 10 ML;SQ OVER 3 HOURS
     Route: 058
  6. SOLU-MEDROL [Concomitant]
     Active Substance: METHYLPREDNISOLONE SODIUM SUCCINATE
     Dosage: 1 GM EVERY OTHER WEEK
     Dates: start: 200909
  7. RITUXAN [Concomitant]
     Active Substance: RITUXIMAB

REACTIONS (6)
  - Abdominal discomfort [Unknown]
  - Pyrexia [Recovered/Resolved]
  - Arthralgia [Unknown]
  - White blood cell count decreased [Recovered/Resolved]
  - Platelet count decreased [Recovered/Resolved]
  - Back pain [Unknown]

NARRATIVE: CASE EVENT DATE: 20100917
